FAERS Safety Report 8056600-3 (Version None)
Quarter: 2012Q1

REPORT INFORMATION
  Report Type: 
  Country: None (occurrence: None)
  Receive Date: 20120119
  Receipt Date: 20120111
  Transmission Date: 20120608
  Serious: Yes (Other)
  Sender: FDA-Public Use
  Company Number: US-NAPPMUNDI-USA-2011-0077309

PATIENT
  Sex: Female
  Weight: 65.397 kg

DRUGS (5)
  1. ZANAFLEX [Concomitant]
     Indication: MUSCLE SPASMS
     Dosage: 4 MG, TID PRN
     Dates: start: 20111003
  2. BUTRANS [Suspect]
     Indication: BACK PAIN
     Dosage: 5 MCG, UNK
     Route: 062
     Dates: start: 20110511, end: 20111003
  3. SEROQUEL [Concomitant]
     Indication: BIPOLAR DISORDER
     Dosage: 400 MG, HS
  4. BUTRANS [Suspect]
     Dosage: 10 MCG, UNK
     Route: 062
     Dates: start: 20111003, end: 20111029
  5. TRAZODONE HCL [Concomitant]
     Indication: INSOMNIA
     Dosage: 50 MG, HS

REACTIONS (1)
  - GRAND MAL CONVULSION [None]
